FAERS Safety Report 4551725-9 (Version None)
Quarter: 2005Q1

REPORT INFORMATION
  Report Type: 
  Country: None (occurrence: None)
  Receive Date: 20050113
  Receipt Date: 20041227
  Transmission Date: 20050727
  Serious: Yes (Death)
  Sender: FDA-Public Use
  Company Number: JP-BRISTOL-MYERS SQUIBB COMPANY-12807319

PATIENT
  Age: 59 Year
  Sex: Male

DRUGS (2)
  1. BRIPLATIN [Suspect]
     Indication: GASTRIC CANCER
     Route: 041
     Dates: start: 20030807, end: 20030807
  2. TS-1 [Suspect]
     Indication: GASTRIC CANCER
     Route: 048
     Dates: start: 20030731, end: 20030810

REACTIONS (4)
  - ARTHRALGIA [None]
  - CHEST PAIN [None]
  - GASTROINTESTINAL PERFORATION [None]
  - PERITONITIS [None]
